FAERS Safety Report 6981039-9 (Version None)
Quarter: 2010Q3

REPORT INFORMATION
  Report Type: 
  Country: None (occurrence: None)
  Receive Date: 20100914
  Receipt Date: 20100906
  Transmission Date: 20110219
  Serious: Yes (Hospitalization)
  Sender: FDA-Public Use
  Company Number: GXKR2010IT10242

PATIENT
  Age: 89 Year
  Sex: Female

DRUGS (1)
  1. TICLOPIDINE (NGX) [Suspect]
     Indication: PROPHYLAXIS
     Dosage: 2 POSOLOGIC UNITS
     Route: 048
     Dates: start: 20100420, end: 20100616

REACTIONS (1)
  - LOSS OF CONSCIOUSNESS [None]
